FAERS Safety Report 8112587-6 (Version None)
Quarter: 2012Q1

REPORT INFORMATION
  Report Type: 
  Country: None (occurrence: None)
  Receive Date: 20120203
  Receipt Date: 20120130
  Transmission Date: 20120608
  Serious: Yes (Hospitalization)
  Sender: FDA-Public Use
  Company Number: US-ROCHE-795331

PATIENT
  Sex: Female
  Weight: 97.7 kg

DRUGS (30)
  1. PLAVIX [Concomitant]
  2. PLAVIX [Concomitant]
  3. ASPIRIN [Concomitant]
  4. KEFLEX [Concomitant]
     Dates: start: 20110812, end: 20110817
  5. ACETAMINOPHEN [Concomitant]
     Dates: start: 20110805, end: 20110805
  6. ACTEMRA [Suspect]
     Route: 042
  7. ACTEMRA [Suspect]
     Route: 042
  8. GLIMEPIRIDE [Concomitant]
  9. ACTEMRA [Suspect]
     Indication: RHEUMATOID ARTHRITIS
     Route: 042
  10. METHOTREXATE [Concomitant]
  11. TYLENOL-500 [Concomitant]
  12. PEPCID [Concomitant]
     Dates: start: 20110803, end: 20110805
  13. PLACEBO [Suspect]
     Indication: RHEUMATOID ARTHRITIS
     Route: 042
  14. METHOTREXATE [Concomitant]
  15. VYTORIN [Concomitant]
     Dosage: TDD REPORTED AS 10/40 MG
  16. LORTAB [Concomitant]
     Dates: start: 20110806
  17. ACTEMRA [Suspect]
     Route: 042
  18. DARVOCET-N 50 [Concomitant]
     Dosage: DRUG NAME REPORTED AS DARVOCET N-100
  19. ALBUTEROL SULFATE [Concomitant]
     Dates: start: 20101008
  20. ANCEF [Concomitant]
     Dates: start: 20110805, end: 20110806
  21. MORPHINE [Concomitant]
     Dates: start: 20110805, end: 20110805
  22. ACTEMRA [Suspect]
     Route: 042
  23. FOLIC ACID [Concomitant]
  24. INSULIN [Concomitant]
     Dosage: TDD: 0-8 IU
     Dates: start: 20110805, end: 20110805
  25. ALBUMIN (HUMAN) [Concomitant]
     Dates: start: 20110806, end: 20110806
  26. CALCIUM [Concomitant]
  27. CALCIUM [Concomitant]
  28. IPRATROPIUM BROMIDE [Concomitant]
     Dates: start: 20101008
  29. ACTEMRA [Suspect]
     Route: 042
  30. TRAMADOL HCL [Concomitant]
     Dates: start: 20101217

REACTIONS (1)
  - AORTIC ANEURYSM [None]
